FAERS Safety Report 12659167 (Version 2)
Quarter: 2016Q3

REPORT INFORMATION
  Report Type: Spontaneous
  Country: BR (occurrence: BR)
  Receive Date: 20160817
  Receipt Date: 20160817
  Transmission Date: 20161109
  Serious: Yes (Other)
  Sender: FDA-Public Use
  Company Number: BR-PFIZER INC-2016388110

PATIENT
  Age: 42 Year
  Sex: Female

DRUGS (1)
  1. LYRICA [Suspect]
     Active Substance: PREGABALIN
     Indication: NECK PAIN
     Dosage: 75 MG, DAILY
     Route: 048
     Dates: start: 20160809, end: 20160809

REACTIONS (7)
  - Vomiting [Unknown]
  - Chills [Unknown]
  - Dizziness [Unknown]
  - Blood pressure increased [Not Recovered/Not Resolved]
  - Headache [Unknown]
  - Eating disorder [Unknown]
  - Malaise [Unknown]

NARRATIVE: CASE EVENT DATE: 20160810
